FAERS Safety Report 9837487 (Version 1)
Quarter: 2013Q4

REPORT INFORMATION
  Report Type: Spontaneous
  Country: US (occurrence: None)
  Receive Date: 20131205
  Receipt Date: 20131205
  Transmission Date: 20140711
  Serious: Yes (Hospitalization)
  Sender: FDA-Public Use
  Company Number: 163-POMAL-13091166

PATIENT
  Age: 72 Year
  Sex: Female

DRUGS (9)
  1. POMALYST (POMALIDOMIDE) (CAPSULES) [Suspect]
     Indication: PLASMA CELL MYELOMA
     Dosage: 3 MG, 21 IN 21 D, PO
     Route: 048
     Dates: start: 20130305
  2. AMIODARONE HCL (AMIODARONE HYDROCHLORIDE) (UNKNOWN) [Concomitant]
  3. NOVOLOG FLEXPEN (INSULIN ASPART) (UNKNOWN) [Concomitant]
  4. HYDROCORTISONE (HYDROCORTISONE) [Concomitant]
  5. VITAMIN B-12 (CYANOCOBALAMIN) (UNKNOWN) [Concomitant]
  6. METOPROLOL TARTRATE (METORPROLOL TARTRATE) (UNKNOWN) [Concomitant]
  7. OXYBUTYNIN CHLORIDE ER (OXYBUTYNIN HYDROCHLORIDE) (UNKNOWN) [Concomitant]
  8. METFORMIN HCL (METFORMIN HYDROCHLORIDE) (UNKNOWN) [Concomitant]
  9. RANITIDINE HCL (RANITIDINE HYDROCHLORIDE) (UNKNOWN) [Concomitant]

REACTIONS (1)
  - Urinary tract infection [None]
